FAERS Safety Report 13074144 (Version 2)
Quarter: 2017Q1

REPORT INFORMATION
  Report Type: Other
  Country: PT (occurrence: PT)
  Receive Date: 20161229
  Receipt Date: 20170123
  Transmission Date: 20170428
  Serious: Yes (Hospitalization)
  Sender: FDA-Public Use
  Company Number: PT-JUBILANT GENERICS LIMITED-1061404

PATIENT
  Age: 38 Year
  Sex: Male

DRUGS (4)
  1. CARBAMAZEPINE. [Concomitant]
     Active Substance: CARBAMAZEPINE
  2. OLANZAPINE. [Suspect]
     Active Substance: OLANZAPINE
  3. BIPERIDEN [Suspect]
     Active Substance: BIPERIDEN
  4. MELPERONE [Suspect]
     Active Substance: MELPERONE

REACTIONS (1)
  - Colitis ischaemic [Recovered/Resolved]

NARRATIVE: CASE EVENT DATE: 20170104
